FAERS Safety Report 6886777-4 (Version None)
Quarter: 2010Q3

REPORT INFORMATION
  Report Type: 
  Country: None (occurrence: None)
  Receive Date: 20100730
  Receipt Date: 20100720
  Transmission Date: 20110219
  Serious: Yes (Hospitalization)
  Sender: FDA-Public Use
  Company Number: US-PFIZER INC-2010090838

PATIENT
  Sex: Female
  Weight: 84 kg

DRUGS (7)
  1. GEODON [Suspect]
     Indication: BIPOLAR DISORDER
     Dosage: 40MG CAPSULES, ONE AT 6AM, 5PM AND 60MG AT 9PM.
     Route: 048
  2. GEODON [Suspect]
     Indication: MANIA
  3. VALPROIC ACID [Concomitant]
     Indication: AFFECTIVE DISORDER
     Dosage: 500MG AT 6AM AND1000 MG AT 9PM
  4. VALPROIC ACID [Concomitant]
     Indication: BIPOLAR DISORDER
  5. LITHIUM [Concomitant]
     Indication: PSYCHOTIC DISORDER
     Dosage: 300MG ONE AT 6AM, ONE AT NOON AND A 600MG DOSE AT 5PM
  6. VASOPRESSIN AND ANALOGUES [Concomitant]
     Dosage: UNK
  7. CALCIUM [Concomitant]
     Dosage: UNK

REACTIONS (9)
  - DISSEMINATED INTRAVASCULAR COAGULATION [None]
  - FEELING ABNORMAL [None]
  - GENERAL PHYSICAL HEALTH DETERIORATION [None]
  - HAEMATURIA [None]
  - HEAT STROKE [None]
  - MUCOSAL HAEMORRHAGE [None]
  - OBESITY [None]
  - RHABDOMYOLYSIS [None]
  - UNRESPONSIVE TO STIMULI [None]
